FAERS Safety Report 23734154 (Version 2)
Quarter: 2024Q2

REPORT INFORMATION
  Report Type: Spontaneous
  Country: PL (occurrence: PL)
  Receive Date: 20240412
  Receipt Date: 20240415
  Transmission Date: 20240716
  Serious: Yes (Death, Life-Threatening, Hospitalization, Other)
  Sender: FDA-Public Use
  Company Number: PL-EMA-DD-20190128-abdul_j-164623

PATIENT
  Age: 31 Year
  Sex: Male

DRUGS (11)
  1. TACROLIMUS [Suspect]
     Active Substance: TACROLIMUS
     Indication: Immunosuppressant drug therapy
     Dosage: UNK
     Dates: start: 201411
  2. TACROLIMUS [Suspect]
     Active Substance: TACROLIMUS
     Dosage: PLASMA CONCERTATION WAS TARGETED TO BE APPROXIMATELY 5 NG/ML
     Dates: start: 2015, end: 2015
  3. THYMOCYTE IMMUNE GLOBULIN NOS [Suspect]
     Active Substance: THYMOCYTE IMMUNE GLOBULIN NOS
     Indication: Immunosuppressant drug therapy
     Dosage: 800 MILLIGRAM, QD, TOTAL
     Dates: start: 201411, end: 2014
  4. VELCADE [Suspect]
     Active Substance: BORTEZOMIB
     Indication: Transplant rejection
     Dosage: 4 X 2 MG 1.25 MG/M^2 OF BODY SURFACE
     Dates: start: 2014
  5. METHYLPREDNISOLONE [Suspect]
     Active Substance: METHYLPREDNISOLONE
     Indication: Immunosuppressant drug therapy
     Dosage: 2750 MILLIGRAM, 1 TOTAL
     Dates: start: 201411
  6. METHYLPREDNISOLONE [Suspect]
     Active Substance: METHYLPREDNISOLONE
     Dosage: 40 MILLIGRAM, QD
     Dates: start: 2015
  7. METHYLPREDNISOLONE [Suspect]
     Active Substance: METHYLPREDNISOLONE
     Dosage: 120 MILLIGRAM
     Dates: start: 2015, end: 2015
  8. PREDNISONE [Suspect]
     Active Substance: PREDNISONE
     Indication: Immunosuppressant drug therapy
     Dosage: UNK
     Dates: start: 201411, end: 20150101
  9. MYCOPHENOLATE MOFETIL [Suspect]
     Active Substance: MYCOPHENOLATE MOFETIL
     Indication: Immunosuppressant drug therapy
     Dosage: UNK
     Dates: start: 201411
  10. MYCOPHENOLATE MOFETIL [Suspect]
     Active Substance: MYCOPHENOLATE MOFETIL
     Dosage: 3 GRAM, QD
     Dates: start: 2015, end: 2015
  11. MESALAMINE [Concomitant]
     Active Substance: MESALAMINE
     Indication: Colitis ulcerative
     Dosage: UNK
     Dates: end: 2015

REACTIONS (9)
  - Respiratory distress [Fatal]
  - Hypogammaglobulinaemia [Unknown]
  - Pulmonary fibrosis [Not Recovered/Not Resolved]
  - Influenza like illness [Unknown]
  - Pneumocystis jirovecii infection [Unknown]
  - Pancytopenia [Unknown]
  - Superinfection bacterial [Unknown]
  - Interstitial lung disease [Unknown]
  - Upper respiratory tract infection [Unknown]

NARRATIVE: CASE EVENT DATE: 20150101
